FAERS Safety Report 9037698 (Version 1)
Quarter: 2013Q1

REPORT INFORMATION
  Report Type: Report from Study
  Country: US (occurrence: US)
  Receive Date: 20130129
  Receipt Date: 20130129
  Transmission Date: 20140127
  Serious: No
  Sender: FDA-Public Use
  Company Number: US-ABBOTT-12P-163-0893819-00

PATIENT
  Age: 30 Year
  Sex: Female

DRUGS (9)
  1. HUMIRA 40 MG/0.8 ML PEN [Suspect]
     Indication: PSORIASIS
     Dates: start: 201110, end: 20111231
  2. METFORMIN [Concomitant]
     Indication: DIABETES MELLITUS
     Dosage: U
  3. GLYBURIDE [Concomitant]
     Indication: DIABETES MELLITUS
     Dosage: DAILY
  4. RISPERIDONE [Concomitant]
     Indication: BIPOLAR DISORDER
     Dosage: AT BEDTIME
  5. WELLBUTRIN [Concomitant]
     Indication: DEPRESSION
  6. CYPROHEPTADINE [Concomitant]
     Indication: NIGHTMARE
     Dosage: AT BEDTIME
  7. LAMOTRIGINE [Concomitant]
     Indication: BIPOLAR DISORDER
     Dosage: DAILY
  8. LORAZEPAM [Concomitant]
     Indication: ANXIETY
     Dosage: DAILY
  9. PERCOCET [Concomitant]
     Indication: PAIN
     Dosage: 5 MG - ONE EVERY OTHER DAY AS NEEDED

REACTIONS (2)
  - Pain [Not Recovered/Not Resolved]
  - Pain in extremity [Not Recovered/Not Resolved]
